FAERS Safety Report 15467041 (Version 1)
Quarter: 2018Q4

REPORT INFORMATION
  Report Type: Spontaneous
  Country: ES (occurrence: ES)
  Receive Date: 20181005
  Receipt Date: 20181005
  Transmission Date: 20190204
  Serious: Yes (Disabling)
  Sender: FDA-Public Use
  Company Number: ES-TEVA-2018-ES-961169

PATIENT
  Age: 77 Year
  Sex: Female

DRUGS (5)
  1. CARBOPLATINO (2323A) [Suspect]
     Active Substance: CARBOPLATIN
     Dates: start: 201804
  2. PEMETREXED (2944A) [Concomitant]
     Dates: start: 201804
  3. PREDNISONA (886A) [Concomitant]
     Active Substance: PREDNISONE
     Dates: start: 201805
  4. LYRICA 75 MG CAPSULAS DURAS, 56 C?PSULAS [Concomitant]
     Dates: start: 201805
  5. PANTOPRAZOL ACOST 40 MG COMPRIMIDOS GASTRORRESISTENTES EFG , 28 COMPRI [Concomitant]
     Dates: start: 201805

REACTIONS (2)
  - Corneal disorder [Not Recovered/Not Resolved]
  - Corneal disorder [Not Recovered/Not Resolved]

NARRATIVE: CASE EVENT DATE: 201805
